FAERS Safety Report 5636513-4 (Version None)
Quarter: 2008Q1

REPORT INFORMATION
  Report Type: 
  Country: None (occurrence: None)
  Receive Date: 20080225
  Receipt Date: 20080217
  Transmission Date: 20080703
  Serious: Yes (Other)
  Sender: FDA-Public Use
  Company Number: B0509486A

PATIENT
  Sex: Female

DRUGS (1)
  1. NICABATE CQ 2MG LOZENGE [Suspect]
     Route: 002
     Dates: start: 20060201

REACTIONS (2)
  - DEPENDENCE [None]
  - INCORRECT DRUG ADMINISTRATION DURATION [None]
